FAERS Safety Report 23930974 (Version 2)
Quarter: 2024Q3

REPORT INFORMATION
  Report Type: Spontaneous
  Country: US (occurrence: US)
  Receive Date: 20240603
  Receipt Date: 20240703
  Transmission Date: 20241016
  Serious: Yes (Hospitalization)
  Sender: GRAVITI PHARMACEUTICALS
  Company Number: US-GRAVITIPHARMA-GRA-2405-US-LIT-0153

PATIENT
  Age: 32 Year
  Sex: Male

DRUGS (17)
  1. BACLOFEN [Suspect]
     Active Substance: BACLOFEN
     Indication: Tetanus
     Route: 065
  2. LORAZEPAM [Suspect]
     Active Substance: LORAZEPAM
     Indication: Tetanus
     Route: 042
  3. LORAZEPAM [Suspect]
     Active Substance: LORAZEPAM
     Indication: Muscle spasms
  4. MIDAZOLAM [Suspect]
     Active Substance: MIDAZOLAM
     Indication: Tetanus
     Route: 042
  5. TETANUS IMMUNE GLOBULIN (HUMAN) [Suspect]
     Active Substance: HUMAN CLOSTRIDIUM TETANI TOXOID IMMUNE GLOBULIN
     Indication: Tetanus
  6. TETANUS TOXOIDS [Suspect]
     Active Substance: TETANUS TOXOIDS
     Indication: Tetanus
  7. PROPOFOL [Suspect]
     Active Substance: PROPOFOL
     Indication: Tetanus
     Route: 042
  8. PROPOFOL [Suspect]
     Active Substance: PROPOFOL
     Indication: Analgesic therapy
  9. PROPOFOL [Suspect]
     Active Substance: PROPOFOL
     Indication: Sedation
  10. DANTROLENE [Concomitant]
     Active Substance: DANTROLENE
     Indication: Tetanus
     Route: 042
  11. CISATRACURIUM BESYLATE [Concomitant]
     Active Substance: CISATRACURIUM BESYLATE
     Indication: Tetanus
     Route: 065
  12. MAGNESIUM [Concomitant]
     Active Substance: MAGNESIUM
     Indication: Tetanus
     Route: 065
  13. FENTANYL [Concomitant]
     Active Substance: FENTANYL\FENTANYL CITRATE
     Indication: Sedation
     Route: 065
  14. FENTANYL [Concomitant]
     Active Substance: FENTANYL\FENTANYL CITRATE
     Indication: Analgesic therapy
  15. FOSPHENYTOIN [Concomitant]
     Active Substance: FOSPHENYTOIN
     Indication: Seizure
     Route: 065
  16. LEVETIRACETAM [Concomitant]
     Active Substance: LEVETIRACETAM
     Indication: Seizure
     Route: 065
  17. HYDROMORPHONE [Concomitant]
     Active Substance: HYDROMORPHONE
     Indication: Tetany
     Route: 065

REACTIONS (1)
  - Drug ineffective [Unknown]
